FAERS Safety Report 7429629-3 (Version None)
Quarter: 2011Q2

REPORT INFORMATION
  Report Type: 
  Country: None (occurrence: None)
  Receive Date: 20110421
  Receipt Date: 20110411
  Transmission Date: 20111010
  Serious: Yes (Other)
  Sender: FDA-Public Use
  Company Number: B0714357A

PATIENT
  Sex: Male

DRUGS (1)
  1. AVANDIA [Suspect]
     Route: 065

REACTIONS (3)
  - HEPATIC FAILURE [None]
  - PARTNER STRESS [None]
  - GENERAL PHYSICAL HEALTH DETERIORATION [None]
